FAERS Safety Report 6045693-0 (Version None)
Quarter: 2009Q1

REPORT INFORMATION
  Report Type: 
  Country: None (occurrence: None)
  Receive Date: 20090121
  Receipt Date: 20090121
  Transmission Date: 20090719
  Serious: Yes (Hospitalization)
  Sender: FDA-Public Use
  Company Number: KR-PFIZER INC-2008098881

PATIENT

DRUGS (12)
  1. VORICONAZOLE [Suspect]
     Indication: ASPERGILLOSIS
     Dosage: 400 MG, 2X/DAY
     Dates: start: 20080918, end: 20080918
  2. VORICONAZOLE [Suspect]
     Dosage: 200 MG, 2X/DAY
     Dates: start: 20080919, end: 20080924
  3. URSODIOL [Concomitant]
     Indication: LIVER DISORDER
     Dosage: PER DAY: TID
     Route: 048
     Dates: start: 20080811, end: 20080924
  4. TAMSULOSIN HCL [Concomitant]
     Indication: HYPERPLASIA
     Dosage: QD
     Route: 048
     Dates: start: 20080812, end: 20080924
  5. POTASSIUM CHLORIDE [Concomitant]
     Indication: MINERAL SUPPLEMENTATION
     Dosage: PER DAY:  TID
     Route: 048
     Dates: start: 20080802, end: 20080923
  6. RABEPRAZOLE SODIUM [Concomitant]
     Indication: GASTRODUODENAL ULCER
     Dosage: QD
     Route: 048
     Dates: start: 20080903, end: 20080924
  7. ITRACONAZOLE [Concomitant]
     Indication: ANTIFUNGAL TREATMENT
     Dosage: PER DAY: BID
     Route: 048
     Dates: start: 20080908, end: 20080921
  8. ZOLPIDEM [Concomitant]
     Indication: HYPNOTHERAPY
     Dosage: QD
     Route: 048
     Dates: start: 20080912, end: 20080919
  9. ACETAMINOPHEN [Concomitant]
     Indication: PYREXIA
     Dosage: QD
     Route: 042
     Dates: start: 20080909, end: 20080926
  10. ACETAMINOPHEN [Concomitant]
     Indication: PAIN
  11. METOCLOPRAMIDE [Concomitant]
     Indication: VOMITING
     Dosage: PER DAY: BID
     Route: 042
     Dates: start: 20080723, end: 20080924
  12. METOCLOPRAMIDE [Concomitant]
     Indication: GASTROINTESTINAL DISORDER

REACTIONS (1)
  - BRONCHOPULMONARY ASPERGILLOSIS [None]
